FAERS Safety Report 14771150 (Version 1)
Quarter: 2018Q2

REPORT INFORMATION
  Report Type: Spontaneous
  Country: US (occurrence: US)
  Receive Date: 20180417
  Receipt Date: 20180417
  Transmission Date: 20180711
  Serious: No
  Sender: FDA-Public Use
  Company Number: US-ALLERGAN-1721839US

PATIENT
  Age: 66 Year
  Sex: Female

DRUGS (2)
  1. LATISSE [Suspect]
     Active Substance: BIMATOPROST
     Indication: GROWTH OF EYELASHES
     Dosage: UNK, QHS
     Route: 061
     Dates: end: 201704
  2. LATISSE [Suspect]
     Active Substance: BIMATOPROST
     Dosage: UNK, QHS
     Route: 061

REACTIONS (7)
  - Eye pruritus [Not Recovered/Not Resolved]
  - Product dropper issue [Unknown]
  - Product administered at inappropriate site [Unknown]
  - Drug ineffective [Unknown]
  - Drug dose omission [Unknown]
  - Spinal fracture [Recovering/Resolving]
  - Madarosis [Not Recovered/Not Resolved]

NARRATIVE: CASE EVENT DATE: 201601
